FAERS Safety Report 4374806-1 (Version None)
Quarter: 2004Q2

REPORT INFORMATION
  Report Type: 
  Country: None (occurrence: None)
  Receive Date: 20040604
  Receipt Date: 20040524
  Transmission Date: 20050107
  Serious: Yes (Hospitalization)
  Sender: FDA-Public Use
  Company Number: K200400766

PATIENT
  Age: 70 Year
  Sex: Male

DRUGS (6)
  1. ALTACE [Suspect]
     Dosage: ORAL
     Route: 048
  2. FUROSEMIDE [Suspect]
     Dosage: ORAL
     Route: 048
  3. KAYEXALATE [Concomitant]
  4. FERROUS SULFATE TAB [Concomitant]
  5. ALLOPURINOL [Concomitant]
  6. HYPERIUM (RILMENIDINE) TABLET [Concomitant]

REACTIONS (7)
  - ACIDOSIS [None]
  - DECREASED APPETITE [None]
  - DEHYDRATION [None]
  - HYPERKALAEMIA [None]
  - HYPOCALCAEMIA [None]
  - MUSCULOSKELETAL STIFFNESS [None]
  - RENAL FAILURE ACUTE [None]
